FAERS Safety Report 16113178 (Version 2)
Quarter: 2019Q2

REPORT INFORMATION
  Report Type: Spontaneous
  Country: FR (occurrence: FR)
  Receive Date: 20190325
  Receipt Date: 20190408
  Transmission Date: 20190711
  Serious: Yes (Death)
  Sender: FDA-Public Use
  Company Number: FR-PFIZER INC-2019123732

PATIENT
  Age: 54 Year
  Sex: Male
  Weight: 97 kg

DRUGS (9)
  1. METHOTREXATE SODIUM. [Suspect]
     Active Substance: METHOTREXATE SODIUM
     Indication: RASH PAPULAR
     Dosage: 2.5 MG, 1X/DAY
     Route: 048
     Dates: start: 20181227, end: 20190102
  2. POLARAMINE [Concomitant]
     Active Substance: DEXCHLORPHENIRAMINE MALEATE
     Indication: RASH PAPULAR
     Dosage: 8 MG, 1X/DAY
     Route: 048
     Dates: start: 2018, end: 20181226
  3. TOUJEO [Concomitant]
     Active Substance: INSULIN GLARGINE
     Indication: TYPE 2 DIABETES MELLITUS
     Dosage: 50 IU, 1X/DAY
     Route: 058
     Dates: end: 20190103
  4. ATARAX [Concomitant]
     Active Substance: HYDROXYZINE HYDROCHLORIDE
     Indication: PRURITUS
     Dosage: 25 MG, 1X/DAY
     Route: 048
     Dates: start: 2018, end: 20190114
  5. COUMADINE [Concomitant]
     Active Substance: WARFARIN SODIUM
     Indication: THROMBOSIS PROPHYLAXIS
     Dosage: 3 MG, 1X/DAY
     Route: 048
     Dates: start: 2013, end: 20190107
  6. CORTANCYL [Concomitant]
     Active Substance: PREDNISONE
     Dosage: 40 MG, 1X/DAY
     Route: 048
     Dates: start: 2018, end: 20190114
  7. ASPIRINE PROTECT [Concomitant]
     Active Substance: ASPIRIN
     Indication: THROMBOSIS PROPHYLAXIS
     Dosage: 100 MG, 1X/DAY
     Route: 048
     Dates: end: 20190107
  8. AERIUS (DESLORATADINE) [Concomitant]
     Active Substance: DESLORATADINE
     Dosage: 10 MG, 1X/DAY
     Route: 048
     Dates: start: 20181226, end: 20190114
  9. APIDRA [Concomitant]
     Active Substance: INSULIN GLULISINE
     Indication: TYPE 2 DIABETES MELLITUS
     Dosage: 75 IU, UNK
     Route: 058
     Dates: end: 20190103

REACTIONS (5)
  - Mouth ulceration [Not Recovered/Not Resolved]
  - Product use in unapproved indication [Unknown]
  - Inappropriate schedule of product administration [Fatal]
  - Pancytopenia [Fatal]
  - Accidental overdose [Fatal]

NARRATIVE: CASE EVENT DATE: 20181227
